FAERS Safety Report 16711470 (Version 1)
Quarter: 2019Q3

REPORT INFORMATION
  Report Type: Spontaneous
  Country: US (occurrence: US)
  Receive Date: 20190816
  Receipt Date: 20190816
  Transmission Date: 20191004
  Serious: No
  Sender: FDA-Public Use
  Company Number: US-SA-2019SA223045

PATIENT
  Age: 31 Year
  Sex: Female
  Weight: 95 kg

DRUGS (1)
  1. CEREZYME [Suspect]
     Active Substance: IMIGLUCERASE
     Dosage: 2800 IU, QOW
     Route: 041
     Dates: start: 19971021

REACTIONS (1)
  - Exposure during pregnancy [Unknown]
